FAERS Safety Report 6332780-2 (Version None)
Quarter: 2009Q3

REPORT INFORMATION
  Report Type: 
  Country: None (occurrence: None)
  Receive Date: 20090828
  Receipt Date: 20090819
  Transmission Date: 20100115
  Serious: Yes (Other)
  Sender: FDA-Public Use
  Company Number: B0588734A

PATIENT

DRUGS (5)
  1. LAMOTRIGINE [Suspect]
     Route: 048
     Dates: start: 20090313
  2. PHENYTOIN [Concomitant]
     Route: 065
  3. CARBAMAZEPINE [Concomitant]
     Route: 048
  4. GABAPENTIN [Concomitant]
     Route: 048
  5. OLANZAPINE [Concomitant]
     Route: 048

REACTIONS (11)
  - ABNORMAL SENSATION IN EYE [None]
  - DEPRESSED MOOD [None]
  - DYSPNOEA [None]
  - ECZEMA [None]
  - EYE PAIN [None]
  - GENERAL PHYSICAL HEALTH DETERIORATION [None]
  - HEADACHE [None]
  - JOINT ANKYLOSIS [None]
  - MALAISE [None]
  - SOMNOLENCE [None]
  - TONIC CONVULSION [None]
